FAERS Safety Report 4441949-3 (Version None)
Quarter: 2004Q3

REPORT INFORMATION
  Report Type: 
  Country: None (occurrence: None)
  Receive Date: 20040907
  Receipt Date: 20040812
  Transmission Date: 20050211
  Serious: Yes (Other)
  Sender: FDA-Public Use
  Company Number: US-GLAXOSMITHKLINE-A0521981A

PATIENT
  Age: 19 Year
  Sex: Female

DRUGS (4)
  1. LAMICTAL [Suspect]
     Indication: ANXIETY
     Route: 048
     Dates: start: 20040714, end: 20040801
  2. SYNTHROID [Concomitant]
  3. PREVACID [Concomitant]
  4. LO/OVRAL [Concomitant]

REACTIONS (5)
  - CONVULSION [None]
  - FEELING HOT AND COLD [None]
  - MUSCLE CRAMP [None]
  - PAIN IN EXTREMITY [None]
  - PSYCHOSOMATIC DISEASE [None]
